FAERS Safety Report 8507203-5 (Version None)
Quarter: 2012Q3

REPORT INFORMATION
  Report Type: 
  Country: None (occurrence: None)
  Receive Date: 20120712
  Receipt Date: 20120705
  Transmission Date: 20120928
  Serious: Yes (Death)
  Sender: FDA-Public Use
  Company Number: CA-SANOFI-AVENTIS-2012SA048162

PATIENT
  Age: 69 Year
  Sex: Female
  Weight: 73 kg

DRUGS (2)
  1. TAXOTERE [Suspect]
     Route: 042
  2. NEULASTA [Concomitant]
     Route: 058

REACTIONS (3)
  - INTERSTITIAL LUNG DISEASE [None]
  - LUNG DISORDER [None]
  - DYSPNOEA [None]
